FAERS Safety Report 7536793 (Version 9)
Quarter: 2018Q4

REPORT INFORMATION
  Report Type: Spontaneous
  Country: US (occurrence: US)
  Receive Date: 20100811
  Receipt Date: 20181019
  Transmission Date: 20190205
  Serious: Yes (Life-Threatening, Hospitalization, Disabling, Other)
  Sender: FDA-Public Use
  Company Number: US-ELI_LILLY_AND_COMPANY-US_0509122330

PATIENT
  Sex: Female
  Weight: 76.19 kg

DRUGS (12)
  1. TEGRETOL [Concomitant]
     Active Substance: CARBAMAZEPINE
     Indication: CRANIOCEREBRAL INJURY
  2. CRESTOR [Concomitant]
     Active Substance: ROSUVASTATIN CALCIUM
     Indication: BLOOD CHOLESTEROL INCREASED
     Dosage: 20 MG, EACH EVENING
  3. TEGRETOL [Concomitant]
     Active Substance: CARBAMAZEPINE
     Indication: EPILEPSY
     Dosage: 600 MG, BID
  4. PANTOPRAZOLE [Concomitant]
     Active Substance: PANTOPRAZOLE
     Indication: GASTROOESOPHAGEAL REFLUX DISEASE
     Dosage: 40 MG, QD
  5. ZYPREXA [Suspect]
     Active Substance: OLANZAPINE
     Indication: DEPRESSION
     Dosage: UNK, UNKNOWN
     Dates: start: 1998
  6. DEPAKOTE [Concomitant]
     Active Substance: DIVALPROEX SODIUM
     Indication: PRODUCT USED FOR UNKNOWN INDICATION
  7. LEVETIRACETAM. [Concomitant]
     Active Substance: LEVETIRACETAM
     Indication: CRANIOCEREBRAL INJURY
  8. ZYPREXA [Suspect]
     Active Substance: OLANZAPINE
     Indication: PSYCHOTIC DISORDER
  9. LAMICTAL [Concomitant]
     Active Substance: LAMOTRIGINE
     Indication: EPILEPSY
     Dosage: 150 MG, EACH MORNING
  10. LAMICTAL [Concomitant]
     Active Substance: LAMOTRIGINE
     Dosage: 225 MG, EACH EVENING
  11. LEVETIRACETAM. [Concomitant]
     Active Substance: LEVETIRACETAM
     Indication: EPILEPSY
     Dosage: UNK
     Dates: start: 1999, end: 200811
  12. FOLIC ACID. [Concomitant]
     Active Substance: FOLIC ACID
     Indication: PRODUCT USED FOR UNKNOWN INDICATION
     Dosage: 1 MG, QD

REACTIONS (54)
  - Type 1 diabetes mellitus [Unknown]
  - Fungal skin infection [Unknown]
  - Diabetic foot [Unknown]
  - Visual impairment [Unknown]
  - Wound [Unknown]
  - Chest pain [Unknown]
  - Coma [Unknown]
  - Protein urine [Unknown]
  - Infection susceptibility increased [Unknown]
  - Vomiting [Unknown]
  - Hypoglycaemia [Recovered/Resolved]
  - Alopecia [Unknown]
  - Hypoaesthesia [Unknown]
  - Haemorrhage [Unknown]
  - Diabetic blindness [Unknown]
  - Upper limb fracture [Unknown]
  - Loss of consciousness [Unknown]
  - Seizure [Unknown]
  - Weight decreased [Unknown]
  - Speech disorder [Unknown]
  - Off label use [Unknown]
  - Blood glucose decreased [Unknown]
  - Female sexual dysfunction [Unknown]
  - Hypertension [Unknown]
  - Multi-organ disorder [Unknown]
  - Infection [Unknown]
  - Glycosylated haemoglobin increased [Unknown]
  - Gastritis [Unknown]
  - Diabetic neuropathy [Unknown]
  - Gastrointestinal infection [Unknown]
  - Haemangioma of bone [Unknown]
  - Fall [Unknown]
  - Blood glucose increased [Recovered/Resolved]
  - Infertility [Unknown]
  - Visual field defect [Unknown]
  - Aggression [Unknown]
  - Cardiovascular disorder [Unknown]
  - Retinal disorder [Unknown]
  - Staphylococcal infection [Unknown]
  - Limb injury [Unknown]
  - Limb discomfort [Unknown]
  - Dyspnoea [Unknown]
  - Fall [Unknown]
  - Hypothyroidism [Unknown]
  - Disorientation [Unknown]
  - Confusional state [Unknown]
  - Head injury [Unknown]
  - Tremor [Unknown]
  - Diabetic ketoacidosis [Unknown]
  - Pancreatitis [Unknown]
  - Fungal infection [Unknown]
  - Foot fracture [Not Recovered/Not Resolved]
  - Diabetic eye disease [Unknown]
  - Nausea [Unknown]

NARRATIVE: CASE EVENT DATE: 2003
